FAERS Safety Report 6310546-7 (Version None)
Quarter: 2009Q3

REPORT INFORMATION
  Report Type: 
  Country: None (occurrence: None)
  Receive Date: 20090811
  Receipt Date: 20090603
  Transmission Date: 20100115
  Serious: No
  Sender: FDA-Public Use
  Company Number: 1000006610

PATIENT
  Age: 79 Year
  Sex: Female

DRUGS (2)
  1. SAVELLA [Suspect]
     Indication: FIBROMYALGIA
     Dosage: 6.25 MG (6.25 MG, 1 IN 1 D) , ORAL
     Route: 048
     Dates: start: 20090520
  2. PREDNISONE TAB [Concomitant]

REACTIONS (1)
  - FEELING JITTERY [None]
